FAERS Safety Report 19274883 (Version 3)
Quarter: 2021Q2

REPORT INFORMATION
  Report Type: Report from Study
  Country: US (occurrence: US)
  Receive Date: 20210519
  Receipt Date: 20210611
  Transmission Date: 20210717
  Serious: Yes (Other)
  Sender: FDA-Public Use
  Company Number: NVSC2021US108833

PATIENT
  Sex: Female

DRUGS (1)
  1. PIQRAY [Suspect]
     Active Substance: ALPELISIB
     Indication: BREAST CANCER
     Dosage: 200 MG, QD
     Route: 048
     Dates: start: 20210424

REACTIONS (9)
  - Decreased appetite [Unknown]
  - Dry mouth [Unknown]
  - Weight decreased [Unknown]
  - Drug ineffective [Unknown]
  - Dysgeusia [Unknown]
  - Hyperglycaemia [Unknown]
  - Liver disorder [Unknown]
  - Poor quality sleep [Unknown]
  - Fatigue [Unknown]
